FAERS Safety Report 8307664-0 (Version None)
Quarter: 2012Q2

REPORT INFORMATION
  Report Type: 
  Country: None (occurrence: None)
  Receive Date: 20120424
  Receipt Date: 20120418
  Transmission Date: 20120825
  Serious: Yes (Life-Threatening, Hospitalization)
  Sender: FDA-Public Use
  Company Number: NL-MEDIMMUNE-MEDI-0014848

PATIENT
  Sex: Female
  Weight: 4.37 kg

DRUGS (7)
  1. TETANUS VACCINATION [Concomitant]
  2. POLIOMYELITIS VACCINATION [Concomitant]
  3. SYNAGIS [Suspect]
     Route: 030
     Dates: start: 20120131, end: 20120131
  4. DIPHTHERIA VACCINATION [Concomitant]
  5. WHOOPING COUGH VACCINATION [Concomitant]
  6. THEOPHILINE [Concomitant]
  7. SYNAGIS [Suspect]
     Indication: PREMATURE BABY
     Route: 030
     Dates: start: 20120104, end: 20120104

REACTIONS (2)
  - RESPIRATORY ARREST [None]
  - PYREXIA [None]
